FAERS Safety Report 13180180 (Version 2)
Quarter: 2017Q1

REPORT INFORMATION
  Report Type: Spontaneous
  Country: FR (occurrence: FR)
  Receive Date: 20170202
  Receipt Date: 20170322
  Transmission Date: 20170428
  Serious: Yes (Death)
  Sender: FDA-Public Use
  Company Number: FR-JNJFOC-20170200569

PATIENT
  Sex: Male
  Weight: 85 kg

DRUGS (1)
  1. ZYTIGA [Suspect]
     Active Substance: ABIRATERONE ACETATE
     Indication: PROSTATE CANCER
     Route: 048

REACTIONS (1)
  - Prostate cancer metastatic [Fatal]
